FAERS Safety Report 13940680 (Version 2)
Quarter: 2017Q3

REPORT INFORMATION
  Report Type: Spontaneous
  Country: JP (occurrence: JP)
  Receive Date: 20170906
  Receipt Date: 20170908
  Transmission Date: 20171127
  Serious: Yes (Other)
  Sender: FDA-Public Use
  Company Number: JP-PFIZER INC-2017384926

PATIENT
  Age: 5 Year
  Sex: Female
  Weight: 15 kg

DRUGS (4)
  1. XYZAL [Suspect]
     Active Substance: LEVOCETIRIZINE DIHYDROCHLORIDE
     Indication: URTICARIA
     Dosage: 2.5 ML, 2X/DAY
     Route: 065
     Dates: start: 20170729, end: 20170731
  2. BIOFERMIN R [Concomitant]
     Active Substance: BACILLUS SUBTILIS\LACTOBACILLUS ACIDOPHILUS\STREPTOCOCCUS FAECAIS
     Dosage: UNK
  3. BANAN [Suspect]
     Active Substance: CEFPODOXIME PROXETIL
     Indication: BACTERIAL INFECTION
     Dosage: 2.5 G, 1X/DAY
     Route: 065
     Dates: start: 20170725, end: 20170727
  4. WIDECILLIN /00249602/ [Concomitant]
     Dosage: UNK

REACTIONS (2)
  - Arrhythmia [Unknown]
  - Urticaria [Unknown]

NARRATIVE: CASE EVENT DATE: 20170728
